FAERS Safety Report 21601784 (Version 1)
Quarter: 2022Q4

REPORT INFORMATION
  Report Type: Report from Study
  Country: DE (occurrence: DE)
  Receive Date: 20221116
  Receipt Date: 20221116
  Transmission Date: 20230112
  Serious: Yes (Hospitalization)
  Sender: FDA-Public Use
  Company Number: DE-JNJFOC-20220744270

PATIENT
  Age: 56 Year
  Sex: Female
  Weight: 91.5 kg

DRUGS (5)
  1. TECLISTAMAB [Suspect]
     Active Substance: TECLISTAMAB
     Indication: Plasma cell myeloma
     Dosage: STEP UP DOSE 1
     Route: 058
     Dates: start: 20220802
  2. TECLISTAMAB [Suspect]
     Active Substance: TECLISTAMAB
     Dosage: STEP UP DOSE 2
     Route: 058
     Dates: start: 20220804
  3. TECLISTAMAB [Suspect]
     Active Substance: TECLISTAMAB
     Dosage: STEP UP DOSE 3
     Route: 058
     Dates: start: 20220808
  4. TECLISTAMAB [Suspect]
     Active Substance: TECLISTAMAB
     Dosage: MOST RECENT DOSE, MED KIT NO. 112991, 946019
     Route: 058
     Dates: start: 20220815
  5. DARATUMUMAB [Suspect]
     Active Substance: DARATUMUMAB
     Indication: Plasma cell myeloma
     Dosage: MOST RECENT DOSE 15-AUG-2022; 12:44,  MED KIT NO 112944, 946019
     Route: 058
     Dates: start: 20220801

REACTIONS (2)
  - Infection [Recovered/Resolved]
  - Cytokine release syndrome [Recovered/Resolved]

NARRATIVE: CASE EVENT DATE: 20220806
